FAERS Safety Report 19764937 (Version 2)
Quarter: 2021Q3

REPORT INFORMATION
  Report Type: Report from Study
  Country: US (occurrence: US)
  Receive Date: 20210830
  Receipt Date: 20210927
  Transmission Date: 20211014
  Serious: Yes (Hospitalization, Other)
  Sender: FDA-Public Use
  Company Number: US-VELOXIS PHARMACEUTICALS-2021VELUS-000610

PATIENT
  Age: 68 Year
  Sex: Male
  Weight: 75.3 kg

DRUGS (55)
  1. ENVARSUS XR [Suspect]
     Active Substance: TACROLIMUS
     Indication: PROPHYLAXIS AGAINST TRANSPLANT REJECTION
     Dosage: 11 MG
     Dates: start: 20210210, end: 20210211
  2. ENVARSUS XR [Suspect]
     Active Substance: TACROLIMUS
     Dosage: 5 MG
     Dates: start: 20210224, end: 20210224
  3. ENVARSUS XR [Suspect]
     Active Substance: TACROLIMUS
     Dosage: 6 MG
     Dates: start: 20210306, end: 20210306
  4. PREDNISONE. [Suspect]
     Active Substance: PREDNISONE
     Dosage: 80 MG, QD
     Route: 048
     Dates: start: 20210212
  5. DOCUSATE SODIUM. [Concomitant]
     Active Substance: DOCUSATE SODIUM
     Indication: CONSTIPATION
     Dosage: 100 MG, BID
     Route: 048
     Dates: start: 20210209, end: 20210315
  6. DESMOPRESSIN [Concomitant]
     Active Substance: DESMOPRESSIN
     Dosage: 23.5 UNK
     Route: 042
     Dates: start: 20210302, end: 20210302
  7. ONDANSETRON [Concomitant]
     Active Substance: ONDANSETRON
     Indication: NAUSEA
     Dosage: 4 MG
     Route: 042
  8. FUROSEMIDE. [Concomitant]
     Active Substance: FUROSEMIDE
     Dosage: 100 MG, ONE TIME DOSE
     Route: 042
     Dates: start: 20210219, end: 20210219
  9. FUROSEMIDE. [Concomitant]
     Active Substance: FUROSEMIDE
     Dosage: 100 MG, ONE TIME DOSE
     Route: 042
     Dates: start: 20210227, end: 20210227
  10. ACETAMINOPHEN. [Concomitant]
     Active Substance: ACETAMINOPHEN
     Indication: PAIN
     Dosage: 650 MG, Q6H
     Route: 048
     Dates: start: 20210309
  11. FUROSEMIDE. [Concomitant]
     Active Substance: FUROSEMIDE
     Dosage: 80 MG, ONE TIME DOSE
     Route: 042
     Dates: start: 20210225, end: 20210225
  12. ENVARSUS XR [Suspect]
     Active Substance: TACROLIMUS
     Dosage: 11 MG
     Dates: start: 20210210, end: 20210211
  13. ENVARSUS XR [Suspect]
     Active Substance: TACROLIMUS
     Dosage: 6 MG
     Dates: start: 20210225, end: 20210301
  14. PREDNISONE. [Suspect]
     Active Substance: PREDNISONE
     Indication: IMMUNOSUPPRESSION
     Dosage: 120 MG, QD
     Route: 048
     Dates: start: 20210211
  15. CELLCEPT [Suspect]
     Active Substance: MYCOPHENOLATE MOFETIL\MYCOPHENOLATE MOFETIL HYDROCHLORIDE
     Indication: PROPHYLAXIS AGAINST TRANSPLANT REJECTION
  16. ROSUVASTATIN. [Concomitant]
     Active Substance: ROSUVASTATIN
     Dosage: 10 MG, QD
     Route: 048
     Dates: start: 20210218
  17. TAMSULOSINE ACTAVIS [Concomitant]
     Active Substance: TAMSULOSIN
     Dosage: 0.4 MG, QH
     Route: 048
     Dates: start: 20210227
  18. ENVARSUS XR [Suspect]
     Active Substance: TACROLIMUS
     Dosage: 5 UNK
     Dates: start: 20210310
  19. PREDNISONE. [Suspect]
     Active Substance: PREDNISONE
     Dosage: 40 MG, QD
     Route: 048
     Dates: start: 20210213
  20. PREDNISONE. [Suspect]
     Active Substance: PREDNISONE
     Dosage: 5 MG, QD
     Route: 048
     Dates: start: 20210222
  21. THYMOGLOBULIN [Suspect]
     Active Substance: LAPINE T-LYMPHOCYTE IMMUNE GLOBULIN
     Indication: IMMUNOSUPPRESSION
     Dosage: 125 MG, ONE TIME DOSE
     Route: 042
     Dates: start: 20210209, end: 20210209
  22. CEFAZOLIN [Concomitant]
     Active Substance: CEFAZOLIN
     Indication: INFECTION PROPHYLAXIS
     Dosage: 500 MG, Q8H
     Route: 042
     Dates: start: 20210209, end: 20210210
  23. TAMSULOSINE ACTAVIS [Concomitant]
     Active Substance: TAMSULOSIN
     Indication: BENIGN PROSTATIC HYPERPLASIA
     Dosage: 0.4 MG, QH
     Route: 048
     Dates: start: 20100602, end: 20210215
  24. FUROSEMIDE. [Concomitant]
     Active Substance: FUROSEMIDE
     Dosage: 80 MG, ONE TIME DOSE
     Route: 042
     Dates: start: 20210224, end: 20210224
  25. ENVARSUS XR [Suspect]
     Active Substance: TACROLIMUS
     Dosage: 3 MG
     Dates: start: 20210214, end: 20210221
  26. ENVARSUS XR [Suspect]
     Active Substance: TACROLIMUS
     Dosage: 4 MG
     Dates: start: 20210222, end: 20210223
  27. PREDNISONE. [Suspect]
     Active Substance: PREDNISONE
     Indication: PROPHYLAXIS AGAINST TRANSPLANT REJECTION
     Dosage: 160 MG, QD
     Route: 048
     Dates: start: 20210210
  28. MYFORTIC [Suspect]
     Active Substance: MYCOPHENOLATE SODIUM
     Indication: IMMUNOSUPPRESSION
  29. THYMOGLOBULIN [Suspect]
     Active Substance: LAPINE T-LYMPHOCYTE IMMUNE GLOBULIN
     Indication: PROPHYLAXIS AGAINST TRANSPLANT REJECTION
     Dosage: 125 MG, ONE TIME DOSE
     Route: 042
     Dates: start: 20210211, end: 20210211
  30. ACETAMINOPHEN. [Concomitant]
     Active Substance: ACETAMINOPHEN
     Dosage: 975 MG, Q8H
     Route: 048
     Dates: start: 20210209, end: 20210310
  31. DIPHENHYDRAMINE. [Concomitant]
     Active Substance: DIPHENHYDRAMINE
     Dosage: 50 MG
     Route: 048
     Dates: start: 20210211, end: 20210211
  32. FAMOTIDINE. [Concomitant]
     Active Substance: FAMOTIDINE
     Indication: STRESS ULCER
     Dosage: 20 MG, Q12H
     Route: 048
     Dates: start: 20210210, end: 20210211
  33. INSULIN ASPART [Concomitant]
     Active Substance: INSULIN ASPART
     Indication: HYPERGLYCAEMIA
     Dosage: 1?6 U QID
     Route: 058
     Dates: start: 20210209, end: 20210310
  34. METOPROLOL TARTRATE. [Concomitant]
     Active Substance: METOPROLOL TARTRATE
     Indication: HYPERTENSION
     Dosage: 5 MG
     Route: 042
     Dates: start: 20210209, end: 20210209
  35. FUROSEMIDE. [Concomitant]
     Active Substance: FUROSEMIDE
     Dosage: 100 MG, ONE TIME DOSE
     Route: 042
     Dates: start: 20210307, end: 20210307
  36. ENVARSUS XR [Suspect]
     Active Substance: TACROLIMUS
     Dosage: 11 MG
     Dates: start: 20210210, end: 20210211
  37. ENVARSUS XR [Suspect]
     Active Substance: TACROLIMUS
     Dosage: 6 MG
     Dates: start: 20210212, end: 20210212
  38. ENVARSUS XR [Suspect]
     Active Substance: TACROLIMUS
     Dosage: 8 MG
     Dates: start: 20210302, end: 20210305
  39. THYMOGLOBULIN [Suspect]
     Active Substance: LAPINE T-LYMPHOCYTE IMMUNE GLOBULIN
     Dosage: 125 MG, ONE TIME DOSE
     Route: 042
     Dates: start: 20210222, end: 20210222
  40. ACETAMINOPHEN. [Concomitant]
     Active Substance: ACETAMINOPHEN
     Indication: IMMUNOSUPPRESSANT DRUG THERAPY
     Dosage: 650 MG
     Route: 042
     Dates: start: 20210209, end: 20210209
  41. DIPHENHYDRAMINE. [Concomitant]
     Active Substance: DIPHENHYDRAMINE
     Dosage: 50 MG
     Route: 048
     Dates: start: 20210222, end: 20210222
  42. FUROSEMIDE. [Concomitant]
     Active Substance: FUROSEMIDE
     Indication: FLUID OVERLOAD
     Dosage: 160 MG, ONE TIME DOSE
     Route: 042
     Dates: start: 20210210, end: 20210210
  43. CELLCEPT [Suspect]
     Active Substance: MYCOPHENOLATE MOFETIL\MYCOPHENOLATE MOFETIL HYDROCHLORIDE
     Indication: IMMUNOSUPPRESSION
     Dosage: 500 MG, Q12H
     Route: 048
     Dates: start: 20210209, end: 20210217
  44. DIPHENHYDRAMINE. [Concomitant]
     Active Substance: DIPHENHYDRAMINE
     Indication: IMMUNOSUPPRESSANT DRUG THERAPY
     Dosage: 50 MG
     Route: 042
     Dates: start: 20210209, end: 20210209
  45. FLUTICASONE PROPIONATE. [Concomitant]
     Active Substance: FLUTICASONE PROPIONATE
     Indication: HYPERSENSITIVITY
     Dosage: 2 SPRAYS, BID
     Route: 045
     Dates: start: 20140128
  46. DESMOPRESSIN [Concomitant]
     Active Substance: DESMOPRESSIN
     Indication: BIOPSY KIDNEY
     Dosage: 24 MICROGRAM
     Route: 042
     Dates: start: 20210209, end: 20210209
  47. ROSUVASTATIN. [Concomitant]
     Active Substance: ROSUVASTATIN
     Indication: HYPERLIPIDAEMIA
     Dosage: 40 MG, QD
     Route: 048
     Dates: start: 20130213, end: 20210217
  48. FUROSEMIDE. [Concomitant]
     Active Substance: FUROSEMIDE
     Dosage: 100 MG, ONE TIME DOSE
     Route: 042
     Dates: start: 20210210, end: 20210210
  49. FUROSEMIDE. [Concomitant]
     Active Substance: FUROSEMIDE
     Dosage: 100 MG, ONE TIME DOSE
     Route: 042
     Dates: start: 20210211, end: 20210211
  50. ENVARSUS XR [Suspect]
     Active Substance: TACROLIMUS
     Dosage: 4 MG
     Dates: start: 20210307, end: 20210309
  51. PREDNISONE. [Suspect]
     Active Substance: PREDNISONE
     Dosage: 20 MG, QD
     Route: 048
     Dates: start: 20210214, end: 20210221
  52. MYFORTIC [Suspect]
     Active Substance: MYCOPHENOLATE SODIUM
     Indication: PROPHYLAXIS AGAINST TRANSPLANT REJECTION
     Dosage: 360 MG, Q12H
     Route: 048
     Dates: start: 20210218
  53. NYSTATIN. [Concomitant]
     Active Substance: NYSTATIN
     Indication: CANDIDA INFECTION
     Dosage: 5 MILLILITER, TID
     Route: 048
     Dates: start: 20210209, end: 20210309
  54. FUROSEMIDE. [Concomitant]
     Active Substance: FUROSEMIDE
     Dosage: 80 MG, ONE TIME DOSE
     Route: 042
     Dates: start: 20210218, end: 20210218
  55. FUROSEMIDE. [Concomitant]
     Active Substance: FUROSEMIDE
     Dosage: 100 MG, ONE TIME DOSE
     Route: 042
     Dates: start: 20210220, end: 20210220

REACTIONS (13)
  - Gastritis [Recovered/Resolved with Sequelae]
  - Hypophagia [Recovered/Resolved with Sequelae]
  - Hypotension [Recovered/Resolved with Sequelae]
  - Renal tubular necrosis [Recovered/Resolved]
  - Bradycardia [Recovered/Resolved]
  - Pneumonia [Recovered/Resolved with Sequelae]
  - Nausea [Recovered/Resolved with Sequelae]
  - Pancreatic cyst [Recovering/Resolving]
  - Anaemia [Recovered/Resolved with Sequelae]
  - Haematoma [Recovered/Resolved with Sequelae]
  - Delayed graft function [Recovered/Resolved with Sequelae]
  - Urinary retention [Recovered/Resolved with Sequelae]
  - Pseudomonas infection [Recovered/Resolved with Sequelae]

NARRATIVE: CASE EVENT DATE: 20210210
